FAERS Safety Report 4530385-7 (Version None)
Quarter: 2004Q4

REPORT INFORMATION
  Report Type: 
  Country: None (occurrence: None)
  Receive Date: 20041215
  Receipt Date: 20041203
  Transmission Date: 20050328
  Serious: Yes (Hospitalization)
  Sender: FDA-Public Use
  Company Number: HQWYE996612JUL04

PATIENT
  Age: 4 Year
  Sex: Female
  Weight: 13.7 kg

DRUGS (22)
  1. RAPAMUNE [Suspect]
     Indication: PROPHYLAXIS AGAINST TRANSPLANT REJECTION
     Dosage: SEE IMAGE
     Dates: start: 20020507, end: 20040809
  2. RAPAMUNE [Suspect]
     Indication: PROPHYLAXIS AGAINST TRANSPLANT REJECTION
     Dosage: SEE IMAGE
     Dates: start: 20040810, end: 20040916
  3. RAPAMUNE [Suspect]
     Indication: PROPHYLAXIS AGAINST TRANSPLANT REJECTION
     Dosage: SEE IMAGE
     Dates: start: 20040917
  4. PREVACID [Concomitant]
  5. MIRAPEX [Concomitant]
  6. PROGRAF [Concomitant]
  7. NORVASC [Concomitant]
  8. PREDNISONE [Concomitant]
  9. BACTROBAN (MUPIROCIN) [Concomitant]
  10. ZYRTEC [Concomitant]
  11. BACLOFEN [Concomitant]
  12. VALCYTE (VALGANICLOVIR) [Concomitant]
  13. CARAFATE [Concomitant]
  14. SENOKOT [Concomitant]
  15. REGLAN [Concomitant]
  16. HYDRALAZINE HCL TAB [Concomitant]
  17. BENADRYL [Concomitant]
  18. ZOFRAN [Concomitant]
  19. TYLENOL [Concomitant]
  20. XOPENEX [Concomitant]
  21. LACTULOSE [Concomitant]
  22. GLYCERIN (GLYCEROL) [Concomitant]

REACTIONS (9)
  - APHTHOUS STOMATITIS [None]
  - GASTRIC ULCER [None]
  - HAEMATOCHEZIA [None]
  - HAEMATOCRIT DECREASED [None]
  - LABORATORY TEST ABNORMAL [None]
  - LYMPHADENOPATHY [None]
  - LYMPHOPROLIFERATIVE DISORDER [None]
  - PNEUMONIA [None]
  - RECTAL HAEMORRHAGE [None]
